FAERS Safety Report 13140494 (Version 1)
Quarter: 2017Q1

REPORT INFORMATION
  Report Type: Spontaneous
  Country: DE (occurrence: DE)
  Receive Date: 20170123
  Receipt Date: 20170123
  Transmission Date: 20170428
  Serious: Yes (Hospitalization)
  Sender: FDA-Public Use
  Company Number: DE-TEVA-729670GER

PATIENT
  Sex: Female
  Weight: 55 kg

DRUGS (1)
  1. AMOXICILLIN-RATIOPHARM COMP 875/125 [Suspect]
     Active Substance: AMOXICILLIN\CLAVULANIC ACID
     Indication: EAR INFECTION
     Dosage: 3 DOSAGE FORMS DAILY; 1 DOSAGE FORM = 875 MG AMOXICILLIN/ 125 MG CLAVULANIC ACID
     Dates: end: 20161231

REACTIONS (15)
  - Lip swelling [Recovered/Resolved]
  - Nausea [Not Recovered/Not Resolved]
  - Swelling face [Not Recovered/Not Resolved]
  - Oral candidiasis [Not Recovered/Not Resolved]
  - Paraesthesia oral [Recovered/Resolved]
  - Dizziness [Not Recovered/Not Resolved]
  - Eye pain [Not Recovered/Not Resolved]
  - Tongue discomfort [Not Recovered/Not Resolved]
  - Tongue exfoliation [Not Recovered/Not Resolved]
  - Eye allergy [Not Recovered/Not Resolved]
  - Eye swelling [Not Recovered/Not Resolved]
  - Gingival swelling [Not Recovered/Not Resolved]
  - Oral pruritus [Recovered/Resolved]
  - Abdominal pain upper [Not Recovered/Not Resolved]
  - Ocular hyperaemia [Not Recovered/Not Resolved]
